FAERS Safety Report 25341055 (Version 2)
Quarter: 2025Q2

REPORT INFORMATION
  Report Type: Spontaneous
  Country: US (occurrence: US)
  Receive Date: 20250521
  Receipt Date: 20250616
  Transmission Date: 20250716
  Serious: No
  Sender: GRIFOLS
  Company Number: US-IGSA-BIG0035260

PATIENT
  Age: 85 Year
  Sex: Male

DRUGS (5)
  1. GAMUNEX-C [Suspect]
     Active Substance: HUMAN IMMUNOGLOBULIN G
     Indication: Myopathy
     Dosage: 100 GRAM, Q.3WK.
     Route: 042
     Dates: start: 20200608
  2. GAMUNEX-C [Suspect]
     Active Substance: HUMAN IMMUNOGLOBULIN G
     Indication: Autoimmune myositis
     Dosage: 100 GRAM, Q.3WK.
     Route: 042
     Dates: start: 20200608
  3. GAMUNEX-C [Suspect]
     Active Substance: HUMAN IMMUNOGLOBULIN G
     Indication: Myositis
     Dosage: 100 GRAM, Q.3WK.
     Route: 042
     Dates: start: 20200608
  4. GAMUNEX-C [Suspect]
     Active Substance: HUMAN IMMUNOGLOBULIN G
     Indication: Adverse drug reaction
     Dosage: 100 GRAM, Q.3WK.
     Route: 042
     Dates: start: 20200608
  5. GAMUNEX-C [Suspect]
     Active Substance: HUMAN IMMUNOGLOBULIN G
     Indication: Off label use

REACTIONS (3)
  - Blood pressure systolic increased [Recovering/Resolving]
  - Flushing [Recovering/Resolving]
  - Blood pressure increased [Recovered/Resolved]

NARRATIVE: CASE EVENT DATE: 20250509
